FAERS Safety Report 7990597-7 (Version None)
Quarter: 2011Q4

REPORT INFORMATION
  Report Type: 
  Country: None (occurrence: None)
  Receive Date: 20111219
  Receipt Date: 20110808
  Transmission Date: 20120403
  Serious: No
  Sender: FDA-Public Use
  Company Number: US-ASTRAZENECA-2011SE47855

PATIENT
  Sex: Male

DRUGS (12)
  1. METOPROLOL TARTRATE [Concomitant]
  2. GABAPENTIN [Concomitant]
  3. HYDROCODONE [Concomitant]
  4. TAMSULOSIN HCL [Concomitant]
  5. CRESTOR [Suspect]
     Route: 048
  6. NEXIUM [Concomitant]
  7. OXYCODONE HCL [Concomitant]
  8. ZOLPIDEM [Concomitant]
  9. PROCTOZONE [Concomitant]
  10. SERTRALINE HYDROCHLORIDE [Concomitant]
  11. PLAVIX [Concomitant]
  12. AMOXICILLIN [Concomitant]

REACTIONS (1)
  - PAIN [None]
